FAERS Safety Report 17130322 (Version 3)
Quarter: 2019Q4

REPORT INFORMATION
  Report Type: Report from Study
  Country: AT (occurrence: AT)
  Receive Date: 20191209
  Receipt Date: 20191227
  Transmission Date: 20200122
  Serious: Yes (Congenital Anomaly, Other)
  Sender: FDA-Public Use
  Company Number: AT-MYLANLABS-2019M1119857

PATIENT
  Sex: Female

DRUGS (8)
  1. FUZEON [Suspect]
     Active Substance: ENFUVIRTIDE
     Indication: HIV INFECTION
     Dosage: 800 MILLIGRAM DAILY; COURSE 1
     Route: 064
  2. PHENOXYMETHYLPENICILLIN [Suspect]
     Active Substance: PENICILLIN V
     Indication: PRODUCT USED FOR UNKNOWN INDICATION
     Dosage: UNK
     Route: 064
  3. LAMIVUDINE AND ZIDOVUDINE [Suspect]
     Active Substance: LAMIVUDINE\ZIDOVUDINE
     Indication: HIV INFECTION
     Dosage: COURSE 1
     Route: 064
  4. ISENTRESS [Suspect]
     Active Substance: RALTEGRAVIR POTASSIUM
     Indication: HIV INFECTION
     Dosage: COURSE 1; TAB/CAPS
     Route: 064
  5. LOPINAVIR/RITONAVIR [Suspect]
     Active Substance: LOPINAVIR\RITONAVIR
     Indication: HIV INFECTION
     Dosage: COURSE 1
     Route: 064
  6. ZIDOVUDINE. [Suspect]
     Active Substance: ZIDOVUDINE
     Indication: HIV INFECTION
     Dosage: COURSE 1
     Route: 064
  7. DARUNAVIR [Suspect]
     Active Substance: DARUNAVIR
     Indication: HIV INFECTION
     Dosage: 1200 MILLIGRAM DAILY; COURSE 1
     Route: 064
  8. DARUNAVIR [Suspect]
     Active Substance: DARUNAVIR
     Dosage: 1200 MILLIGRAM DAILY; COURSE 1
     Route: 064

REACTIONS (2)
  - Plagiocephaly [Unknown]
  - Foetal exposure during pregnancy [Recovered/Resolved]
